FAERS Safety Report 4786958-X (Version None)
Quarter: 2005Q3

REPORT INFORMATION
  Report Type: 
  Country: None (occurrence: None)
  Receive Date: 20050930
  Receipt Date: 20050126
  Transmission Date: 20060218
  Serious: Yes (Hospitalization)
  Sender: FDA-Public Use
  Company Number: 2005FR-00279

PATIENT
  Age: 86 Year
  Sex: Female

DRUGS (3)
  1. ASPIRIN [Suspect]
     Dosage: 75 MG ORAL
     Route: 048
  2. NITRAZEPAM [Concomitant]
  3. PREDNISOLONE [Concomitant]

REACTIONS (9)
  - DEPRESSED LEVEL OF CONSCIOUSNESS [None]
  - INTENTIONAL MISUSE [None]
  - METABOLIC ACIDOSIS [None]
  - NEUTROPENIA [None]
  - OVERDOSE [None]
  - OXYGEN SATURATION DECREASED [None]
  - RENAL IMPAIRMENT [None]
  - TACHYPNOEA [None]
  - WHITE BLOOD CELL COUNT INCREASED [None]
